FAERS Safety Report 10455182 (Version 2)
Quarter: 2014Q3

REPORT INFORMATION
  Report Type: Report from Study
  Country: VE (occurrence: VE)
  Receive Date: 20140916
  Receipt Date: 20140916
  Transmission Date: 20150326
  Serious: Yes (Other)
  Sender: FDA-Public Use
  Company Number: VE-ABBVIE-13P-178-1104297-00

PATIENT
  Age: 43 Year
  Sex: Female

DRUGS (1)
  1. HUMIRA [Suspect]
     Active Substance: ADALIMUMAB
     Indication: PSORIASIS
     Route: 058
     Dates: start: 20111223, end: 201210

REACTIONS (2)
  - Hypertension [Not Recovered/Not Resolved]
  - Breast cyst [Not Recovered/Not Resolved]

NARRATIVE: CASE EVENT DATE: 201210
